FAERS Safety Report 15270895 (Version 1)
Quarter: 2018Q3

REPORT INFORMATION
  Report Type: Spontaneous
  Country: FR (occurrence: FR)
  Receive Date: 20180813
  Receipt Date: 20180813
  Transmission Date: 20181010
  Serious: Yes (Hospitalization)
  Sender: FDA-Public Use
  Company Number: FR-B. BRAUN MEDICAL INC.-2053605

PATIENT
  Age: 73 Year
  Sex: Female
  Weight: 115 kg

DRUGS (9)
  1. AMLODIPINE [Concomitant]
     Active Substance: AMLODIPINE BESYLATE
     Route: 048
  2. CEFTRIAXONE SODIUM. [Suspect]
     Active Substance: CEFTRIAXONE SODIUM
     Route: 042
     Dates: start: 20180626, end: 20180710
  3. METRONIDAZOLE INJECTION USP (5 MG/ML) IN PAB? PLASTIC CONTAINER (NDA 0 [Suspect]
     Active Substance: METRONIDAZOLE
     Indication: CHOLANGITIS ACUTE
     Route: 042
     Dates: start: 20180626, end: 20180710
  4. GALVUS [VILDAGLIPTIN] [Concomitant]
     Route: 048
  5. CALCIPARINE [HEPARIN?CALCIUM] [Concomitant]
     Route: 058
  6. KARDEGIC [D,L?LYSINE ACETYLSALICYLATE] [Concomitant]
     Route: 048
  7. BISOCE [BISOPROLOL?HEMIFUMARATE] [Concomitant]
     Route: 048
  8. LANSOPRAZOLE. [Concomitant]
     Active Substance: LANSOPRAZOLE
     Route: 048
  9. LEVOTHYROXINE SODIUM. [Concomitant]
     Active Substance: LEVOTHYROXINE SODIUM
     Route: 048

REACTIONS (2)
  - Eosinophilia [Recovering/Resolving]
  - Pruritus [Recovering/Resolving]

NARRATIVE: CASE EVENT DATE: 20180703
